FAERS Safety Report 9701014 (Version 1)
Quarter: 2013Q4

REPORT INFORMATION
  Report Type: Spontaneous
  Country: US (occurrence: US)
  Receive Date: 20131121
  Receipt Date: 20131121
  Transmission Date: 20140711
  Serious: Yes (Hospitalization, Other)
  Sender: FDA-Public Use
  Company Number: US-009507513-1311USA007776

PATIENT
  Age: 68 Year
  Sex: Female

DRUGS (12)
  1. SINGULAIR [Suspect]
     Indication: CHRONIC OBSTRUCTIVE PULMONARY DISEASE
     Route: 065
  2. PULMICORT [Suspect]
     Indication: PRODUCT USED FOR UNKNOWN INDICATION
     Route: 055
  3. ADVAIR [Suspect]
     Indication: CHRONIC OBSTRUCTIVE PULMONARY DISEASE
     Dosage: 250-50 MG
     Route: 065
  4. SPIRIVA [Suspect]
     Indication: CHRONIC OBSTRUCTIVE PULMONARY DISEASE
     Route: 065
  5. NEURONTIN [Suspect]
     Indication: SYNOVIAL CYST
     Route: 065
  6. NEURONTIN [Suspect]
     Indication: SYNOVIAL CYST
     Dosage: UNK
     Route: 065
  7. NEURONTIN [Suspect]
     Indication: PARAESTHESIA
     Dosage: 600 MG, QID/5XPD
     Route: 065
  8. NEURONTIN [Suspect]
     Indication: PARAESTHESIA
     Dosage: 600 MG,QID/5 X PD
  9. NEURONTIN [Suspect]
     Indication: SYNOVIAL CYST
     Dosage: UNK
     Route: 065
  10. NEURONTIN [Suspect]
     Indication: PARAESTHESIA
     Dosage: UNK
     Route: 065
  11. LANSOPRAZOLE [Concomitant]
     Indication: GASTROOESOPHAGEAL REFLUX DISEASE
     Route: 065
  12. NAPROXEN [Concomitant]
     Indication: OSTEOPOROSIS
     Route: 065

REACTIONS (14)
  - Asthma [Unknown]
  - Chronic obstructive pulmonary disease [Unknown]
  - Erythema [Unknown]
  - Gastrooesophageal reflux disease [Unknown]
  - Heart rate increased [Unknown]
  - Herpes zoster [Unknown]
  - Nerve injury [Unknown]
  - Nervousness [Unknown]
  - Osteoarthritis [Unknown]
  - Osteoporosis [Unknown]
  - Overdose [Unknown]
  - Paraesthesia [Unknown]
  - Pruritus [Unknown]
  - Synovial cyst [Unknown]
